FAERS Safety Report 6321665-3 (Version None)
Quarter: 2009Q3

REPORT INFORMATION
  Report Type: 
  Country: None (occurrence: None)
  Receive Date: 20090819
  Receipt Date: 20090806
  Transmission Date: 20100115
  Serious: Yes (Hospitalization)
  Sender: FDA-Public Use
  Company Number: 2009-200262-NL

PATIENT
  Age: 73 Year
  Sex: Male

DRUGS (18)
  1. REMERON [Suspect]
     Indication: DEPRESSION
     Dosage: 60 MG;QD;PO
     Route: 048
     Dates: end: 20081219
  2. REMERON [Suspect]
     Indication: DEPRESSION
     Dosage: 60 MG;QD;PO
     Route: 048
     Dates: start: 20081221, end: 20081221
  3. REMERON [Suspect]
     Indication: DEPRESSION
     Dosage: 60 MG;QD;PO
     Route: 048
     Dates: start: 20081201
  4. DISTRANEURIN (CLOMETHIAZOLE) [Suspect]
     Dosage: 1800 MG;QD;PO
     Route: 048
     Dates: end: 20081219
  5. DISTRANEURIN (CLOMETHIAZOLE) [Suspect]
     Dosage: 1800 MG;QD;PO
     Route: 048
     Dates: start: 20081221, end: 20081221
  6. DISTRANEURIN (CLOMETHIAZOLE) [Suspect]
     Dosage: 1800 MG;QD;PO
     Route: 048
     Dates: start: 20081201
  7. SEROQUEL [Suspect]
     Dosage: 75 MG;QD;PO
     Route: 048
     Dates: end: 20081219
  8. SEROQUEL [Suspect]
     Dosage: 75 MG;QD;PO
     Route: 048
     Dates: start: 20081221, end: 20081221
  9. SEROQUEL [Suspect]
     Dosage: 75 MG;QD;PO
     Route: 048
     Dates: start: 20081201
  10. DEANXIT (DEANXIT/00428501/) [Suspect]
     Dosage: 120 MG;QD;PO
     Route: 048
     Dates: end: 20081219
  11. DEANXIT (DEANXIT/00428501/) [Suspect]
     Dosage: 120 MG;QD;PO
     Route: 048
     Dates: start: 20081221, end: 20081221
  12. DEANXIT (DEANXIT/00428501/) [Suspect]
     Dosage: 120 MG;QD;PO
     Route: 048
     Dates: start: 20081201
  13. TENORMIN [Suspect]
     Dosage: 100 MG;QD;PO
     Route: 048
     Dates: end: 20081219
  14. TENORMIN [Suspect]
     Dosage: 100 MG;QD;PO
     Route: 048
     Dates: start: 20081221, end: 20081221
  15. TENORMIN [Suspect]
     Dosage: 100 MG;QD;PO
     Route: 048
     Dates: start: 20081201
  16. PLAVIX [Suspect]
     Dosage: 2 DF;QD;PO
     Route: 048
     Dates: end: 20081219
  17. PLAVIX [Suspect]
     Dosage: 2 DF;QD;PO
     Route: 048
     Dates: start: 20081221, end: 20081221
  18. PLAVIX [Suspect]
     Dosage: 2 DF;QD;PO
     Route: 048
     Dates: start: 20081201

REACTIONS (4)
  - BRADYCARDIA [None]
  - MULTIPLE DRUG OVERDOSE INTENTIONAL [None]
  - SOMNOLENCE [None]
  - SUICIDE ATTEMPT [None]
